FAERS Safety Report 5730420-4 (Version None)
Quarter: 2008Q2

REPORT INFORMATION
  Report Type: 
  Country: None (occurrence: None)
  Receive Date: 20080505
  Receipt Date: 20080505
  Transmission Date: 20081010
  Serious: Yes (Life-Threatening, Hospitalization)
  Sender: FDA-Public Use
  Company Number: None

PATIENT
  Sex: Female
  Weight: 80.7403 kg

DRUGS (2)
  1. VANCOMYCIN HCL [Suspect]
     Indication: BACTERIAL INFECTION
     Dosage: 1 GRAM Q24H IV
     Route: 042
     Dates: start: 20080414, end: 20080414
  2. VANCOMYCIN HCL [Suspect]
     Indication: OSTEOMYELITIS CHRONIC
     Dosage: 1 GRAM Q24H IV
     Route: 042
     Dates: start: 20080414, end: 20080414

REACTIONS (3)
  - ANAPHYLACTIC REACTION [None]
  - RESPIRATORY ARREST [None]
  - RESPIRATORY FAILURE [None]
